FAERS Safety Report 22236689 (Version 1)
Quarter: 2023Q2

REPORT INFORMATION
  Report Type: Spontaneous
  Country: DE (occurrence: DE)
  Receive Date: 20230420
  Receipt Date: 20230420
  Transmission Date: 20230721
  Serious: Yes (Hospitalization, Other)
  Sender: FDA-Public Use
  Company Number: DE-TAKEDA-2023TUS034946

PATIENT
  Sex: Female
  Weight: 44 kg

DRUGS (1)
  1. MESALAMINE [Suspect]
     Active Substance: MESALAMINE
     Indication: Product used for unknown indication
     Dosage: UNK

REACTIONS (7)
  - Weight decreased [Recovering/Resolving]
  - Clostridial infection [Recovering/Resolving]
  - Proctitis [Recovering/Resolving]
  - Amoebic dysentery [Recovering/Resolving]
  - Feeding disorder [Recovering/Resolving]
  - Colitis [Recovering/Resolving]
  - Infection [Recovered/Resolved]

NARRATIVE: CASE EVENT DATE: 20230101
